FAERS Safety Report 19785741 (Version 2)
Quarter: 2021Q3

REPORT INFORMATION
  Report Type: Spontaneous
  Country: DE (occurrence: DE)
  Receive Date: 20210903
  Receipt Date: 20210920
  Transmission Date: 20211014
  Serious: Yes (Hospitalization, Other)
  Sender: FDA-Public Use
  Company Number: DE-ACCORD-236915

PATIENT
  Age: 73 Year
  Sex: Female
  Weight: 100 kg

DRUGS (15)
  1. METHOTREXATE. [Suspect]
     Active Substance: METHOTREXATE
     Indication: PRODUCT USED FOR UNKNOWN INDICATION
     Dosage: SCHEME
  2. ATORVASTATIN [Concomitant]
     Active Substance: ATORVASTATIN
     Dosage: 40 MG, 0?0?1?0
  3. CELECOXIB. [Concomitant]
     Active Substance: CELECOXIB
     Dosage: 100 MG, 1?0?0?0
  4. CARVEDILOL/CARVEDILOL HYDROCHLODRIDE [Concomitant]
     Active Substance: CARVEDILOL HYDROCHLORIDE
     Dosage: 12.5 MG, 1?0?1?0
  5. PANTOPRAZOLE [Concomitant]
     Active Substance: PANTOPRAZOLE
     Dosage: 40 MG, 1?0?0?0
  6. CERTOLIZUMAB [Suspect]
     Active Substance: CERTOLIZUMAB
     Indication: PRODUCT USED FOR UNKNOWN INDICATION
     Dosage: 10 MG, 1?0?0?0
  7. APIXABAN [Concomitant]
     Active Substance: APIXABAN
     Dosage: 30 MG, 1?0?0?0
  8. TORASEMIDE [Concomitant]
     Active Substance: TORSEMIDE
     Dosage: 10 MG, 1?0?0?0
  9. INSULIN LISPRO/INSULIN LISPRO PROTAMINE SUSPE [Concomitant]
     Active Substance: INSULIN LISPRO
     Dosage: 40?0?25?0
  10. EDOXABAN [Concomitant]
     Active Substance: EDOXABAN TOSYLATE
     Dosage: 30 MG, 1?0?0?0
  11. COLECALCIFEROL [Concomitant]
     Active Substance: CHOLECALCIFEROL
     Dosage: SCHEME
  12. TILIDINE [Concomitant]
     Active Substance: TILIDINE
     Dosage: 50 MG, 0?0?1?0
  13. METFORMIN [Concomitant]
     Active Substance: METFORMIN HYDROCHLORIDE
     Dosage: 1000 MG, 1?0?1?0
  14. CANDESARTAN/HYDROCHLOROTHIAZIDE [Concomitant]
     Active Substance: CANDESARTAN CILEXETIL\HYDROCHLOROTHIAZIDE
     Dosage: 32,12.5 MG, 1?0?0?0
  15. MOXONIDINE [Concomitant]
     Active Substance: MOXONIDINE
     Dosage: 0.2 MG, 1?0?1?0

REACTIONS (19)
  - Constipation [Unknown]
  - Weight increased [Unknown]
  - Renal impairment [Unknown]
  - Tachypnoea [Unknown]
  - Condition aggravated [Unknown]
  - Vomiting [Unknown]
  - Renal pain [Unknown]
  - Localised infection [Unknown]
  - Pyrexia [Unknown]
  - General physical health deterioration [Unknown]
  - Cough [Unknown]
  - Hyperglycaemia [Unknown]
  - Abdominal pain [Unknown]
  - Electrocardiogram abnormal [Unknown]
  - Atrial fibrillation [Unknown]
  - Flank pain [Unknown]
  - Dyspnoea [Unknown]
  - Dysuria [Unknown]
  - Oedema peripheral [Unknown]
